FAERS Safety Report 11469029 (Version 1)
Quarter: 2015Q3

REPORT INFORMATION
  Report Type: Spontaneous
  Country: FR (occurrence: FR)
  Receive Date: 20150908
  Receipt Date: 20150908
  Transmission Date: 20151125
  Serious: Yes (Life-Threatening, Hospitalization)
  Sender: FDA-Public Use
  Company Number: FR-PFIZER INC-2015294289

PATIENT
  Age: 32 Year
  Sex: Female

DRUGS (8)
  1. SULFARLEM [Concomitant]
     Active Substance: ANETHOLTRITHION
     Dosage: UNK
     Route: 048
  2. LORAZEPAM. [Suspect]
     Active Substance: LORAZEPAM
     Dosage: SUPPOSED INGESTED DOSE OF 105 MG, SINGLE
     Route: 048
     Dates: start: 201507, end: 201507
  3. EFFEXOR LP [Suspect]
     Active Substance: VENLAFAXINE HYDROCHLORIDE
     Dosage: SUPPOSED INGESTED DOSE OF 3.825 G, SINGLE
     Route: 048
     Dates: start: 201507, end: 201507
  4. VALIUM [Suspect]
     Active Substance: DIAZEPAM
     Dosage: UNK, SINGLE
     Route: 048
     Dates: start: 201507, end: 201507
  5. ZOPICLONE [Suspect]
     Active Substance: ZOPICLONE
     Dosage: SUPPOSED INGESTED DOSE OF 105 MG, SINGLE
     Route: 048
     Dates: start: 201507, end: 201507
  6. DEPAMIDE [Suspect]
     Active Substance: VALPROMIDE
     Dosage: SUPPOSED INGESTED DOSE OF 13.8 G, SINGLE
     Route: 048
     Dates: start: 201507, end: 201507
  7. PARACETAMOL [Concomitant]
     Active Substance: ACETAMINOPHEN
     Dosage: UNK
     Route: 048
  8. TERCIAN [Suspect]
     Active Substance: CYAMEMAZINE
     Dosage: UNK, SINGLE
     Route: 048
     Dates: start: 201507, end: 201507

REACTIONS (6)
  - Coma [Recovered/Resolved]
  - Hypotension [Recovered/Resolved]
  - Electrocardiogram QRS complex prolonged [Recovered/Resolved]
  - Suicide attempt [Unknown]
  - Poisoning deliberate [Unknown]
  - Intentional overdose [Unknown]

NARRATIVE: CASE EVENT DATE: 201507
